FAERS Safety Report 14356666 (Version 3)
Quarter: 2018Q3

REPORT INFORMATION
  Report Type: Spontaneous
  Country: FR (occurrence: FR)
  Receive Date: 20180105
  Receipt Date: 20180710
  Transmission Date: 20181010
  Serious: Yes (Hospitalization, Other)
  Sender: FDA-Public Use
  Company Number: FR-MYLANLABS-2018M1000297

PATIENT
  Age: 79 Year
  Sex: Male
  Weight: 90 kg

DRUGS (3)
  1. CETIRIZINE [Suspect]
     Active Substance: CETIRIZINE HYDROCHLORIDE
     Indication: PRURITUS
     Dosage: 10 MG, TOTAL
     Route: 048
     Dates: start: 20171114, end: 20171114
  2. VITAMINE B1 B6 BAYER [Suspect]
     Active Substance: PYRIDOXINE HYDROCHLORIDE\THIAMINE HYDROCHLORIDE
     Indication: PRODUCT USED FOR UNKNOWN INDICATION
     Dosage: UNK
     Route: 048
     Dates: start: 20171110, end: 20171112
  3. VITAMIN K [Suspect]
     Active Substance: PHYTONADIONE
     Indication: PROTHROMBIN TIME RATIO DECREASED
     Dosage: UNK
     Route: 048
     Dates: start: 20171111, end: 20171113

REACTIONS (1)
  - Thrombocytopenia [Not Recovered/Not Resolved]

NARRATIVE: CASE EVENT DATE: 20171117
